FAERS Safety Report 9090367 (Version 1)
Quarter: 2013Q1

REPORT INFORMATION
  Report Type: Report from Study
  Country: US (occurrence: US)
  Receive Date: 20130201
  Receipt Date: 20130201
  Transmission Date: 20140127
  Serious: No
  Sender: FDA-Public Use
  Company Number: US-ABBOTT-12P-163-1026422-00

PATIENT
  Age: 51 Year
  Sex: Female

DRUGS (11)
  1. HUMIRA [Suspect]
     Indication: RHEUMATOID ARTHRITIS
     Dosage: ORDERED
     Dates: start: 20121101
  2. PLAQUENIL [Concomitant]
     Indication: PRODUCT USED FOR UNKNOWN INDICATION
  3. METHOTREXATE [Concomitant]
     Indication: PRODUCT USED FOR UNKNOWN INDICATION
     Dosage: 6 TABLETS WEEKLY
  4. FOLIC ACID [Concomitant]
     Indication: PRODUCT USED FOR UNKNOWN INDICATION
     Dosage: EXCEPT THE DAY OF METHOTREXATE
  5. ULTRAM [Concomitant]
     Indication: PAIN
  6. SKELAXIN [Concomitant]
     Indication: MUSCLE RELAXANT THERAPY
  7. DOXEPIN [Concomitant]
     Indication: DEPRESSION
     Dosage: AT BEDTIME
  8. CLIMARA [Concomitant]
     Indication: HORMONE REPLACEMENT THERAPY
     Dosage: PATCH, APPLIED WEEKLY
  9. ZOCOR [Concomitant]
     Indication: BLOOD CHOLESTEROL INCREASED
  10. LYRICA [Concomitant]
     Indication: FIBROMYALGIA
  11. AMBIEN [Concomitant]
     Indication: INSOMNIA
     Dosage: AT BEDTIME

REACTIONS (2)
  - Incorrect dose administered [Recovering/Resolving]
  - Crying [Recovering/Resolving]
